FAERS Safety Report 18833362 (Version 6)
Quarter: 2025Q1

REPORT INFORMATION
  Report Type: Report from Study
  Country: US (occurrence: US)
  Receive Date: 20210203
  Receipt Date: 20250327
  Transmission Date: 20250409
  Serious: No
  Sender: AMGEN
  Company Number: US-AMGEN-USASP2021016488

PATIENT
  Age: 73 Year
  Sex: Male
  Weight: 87.67 kg

DRUGS (13)
  1. OTEZLA [Suspect]
     Active Substance: APREMILAST
     Indication: Psoriasis
     Dosage: 30 MILLIGRAM, BID
     Route: 048
     Dates: start: 20201006
  2. OTEZLA [Suspect]
     Active Substance: APREMILAST
     Indication: Eczema
  3. GLUCOSAMIN + CHONDROITIN [Concomitant]
  4. CARVEDILOL [Concomitant]
     Active Substance: CARVEDILOL
     Route: 048
  5. HYDROCHLOROTHIAZIDE\VALSARTAN [Concomitant]
     Active Substance: HYDROCHLOROTHIAZIDE\VALSARTAN
     Route: 048
  6. ATORVASTATIN [Concomitant]
     Active Substance: ATORVASTATIN
     Route: 048
  7. HALOBETASOL [Concomitant]
     Active Substance: HALOBETASOL
  8. CALCIPOTRIENE [Concomitant]
     Active Substance: CALCIPOTRIENE
  9. KETOCONAZOLE [Concomitant]
     Active Substance: KETOCONAZOLE
  10. PANTOPRAZOLE [Concomitant]
     Active Substance: PANTOPRAZOLE
     Route: 040
  11. ASPIRIN [Concomitant]
     Active Substance: ASPIRIN
     Route: 048
  12. CLOBETASOL PROPIONATE [Concomitant]
     Active Substance: CLOBETASOL PROPIONATE
  13. HALOBETASOL [Concomitant]
     Active Substance: HALOBETASOL

REACTIONS (5)
  - Rash pruritic [Not Recovered/Not Resolved]
  - Rash erythematous [Not Recovered/Not Resolved]
  - Decreased appetite [Not Recovered/Not Resolved]
  - Intentional product misuse [Unknown]
  - Seborrhoeic keratosis [Unknown]

NARRATIVE: CASE EVENT DATE: 20201001
